FAERS Safety Report 10075723 (Version 1)
Quarter: 2014Q2

REPORT INFORMATION
  Report Type: Spontaneous
  Country: NL (occurrence: NL)
  Receive Date: 20140414
  Receipt Date: 20140414
  Transmission Date: 20141212
  Serious: Yes (Hospitalization, Other)
  Sender: FDA-Public Use
  Company Number: NL-ELI_LILLY_AND_COMPANY-NL201404000881

PATIENT
  Sex: Male

DRUGS (4)
  1. ZYPREXA [Suspect]
     Indication: SCHIZOPHRENIA
     Dosage: UNK, UNKNOWN
     Route: 065
  2. ZYPREXA [Suspect]
     Dosage: 4-5 PACKAGES, SINGLE DOSE
  3. OXAZEPAM [Concomitant]
  4. CITALOPRAM [Concomitant]

REACTIONS (7)
  - Suicide attempt [Recovered/Resolved]
  - Pneumonia aspiration [Recovered/Resolved]
  - Urinary incontinence [Recovered/Resolved]
  - Electrocardiogram QT prolonged [Recovered/Resolved]
  - Delirium [Recovered/Resolved]
  - Gamma-glutamyltransferase increased [Recovered/Resolved]
  - Intentional overdose [Recovered/Resolved]
